FAERS Safety Report 8877981 (Version 1)
Quarter: 2012Q4

REPORT INFORMATION
  Report Type: 
  Country: US (occurrence: US)
  Receive Date: 20121025
  Receipt Date: 20121025
  Transmission Date: 20130627
  Serious: No
  Sender: FDA-Public Use
  Company Number: US-AMGEN-USASP2012015142

PATIENT
  Age: 41 Year
  Sex: Female

DRUGS (3)
  1. ENBREL [Suspect]
     Indication: PSORIATIC ARTHROPATHY
     Dosage: 50 mg, qwk
     Dates: start: 20110531, end: 201201
  2. HUMIRA [Concomitant]
  3. METHOTREXATE [Concomitant]
     Dosage: 20 mg, qwk

REACTIONS (2)
  - Seborrhoeic dermatitis [Unknown]
  - Rash [Not Recovered/Not Resolved]
